FAERS Safety Report 11938699 (Version 1)
Quarter: 2016Q1

REPORT INFORMATION
  Report Type: Spontaneous
  Country: JP (occurrence: JP)
  Receive Date: 20160122
  Receipt Date: 20160122
  Transmission Date: 20160526
  Serious: Yes (Other)
  Sender: FDA-Public Use
  Company Number: JP-009507513-2005-10-0007

PATIENT
  Sex: Female

DRUGS (2)
  1. REBETOL [Suspect]
     Active Substance: RIBAVIRIN
     Indication: CHRONIC HEPATITIS C
     Dosage: DOSE: 600 MG, DURATION: 19 DAY(S)
     Route: 048
     Dates: start: 20050228, end: 20050318
  2. INTRON A [Suspect]
     Active Substance: INTERFERON ALFA-2B
     Indication: CHRONIC HEPATITIS C
     Dosage: DOSE: 6 MU TIW, DURATION: 6 MONTH(S)
     Route: 030
     Dates: start: 20050228, end: 20050819

REACTIONS (2)
  - Abortion induced [Unknown]
  - Exposure during pregnancy [Unknown]

NARRATIVE: CASE EVENT DATE: 2005
